FAERS Safety Report 9051821 (Version 2)
Quarter: 2013Q1

REPORT INFORMATION
  Report Type: Spontaneous
  Country: US (occurrence: US)
  Receive Date: 20130207
  Receipt Date: 20130306
  Transmission Date: 20140127
  Serious: No
  Sender: FDA-Public Use
  Company Number: US-ROXANE LABORATORIES, INC.-2013-RO-00223RO

PATIENT
  Sex: Female

DRUGS (2)
  1. QUETIAPINE FUMARATE [Suspect]
     Indication: BIPOLAR I DISORDER
  2. TEGRETOL XR [Concomitant]
     Indication: BIPOLAR I DISORDER
     Dosage: 700 MG

REACTIONS (3)
  - Drug ineffective [Recovered/Resolved]
  - Initial insomnia [Unknown]
  - Product substitution issue [Unknown]
